FAERS Safety Report 9770945 (Version 1)
Quarter: 2013Q4

REPORT INFORMATION
  Report Type: Spontaneous
  Country: JP (occurrence: JP)
  Receive Date: 20131218
  Receipt Date: 20131218
  Transmission Date: 20140711
  Serious: Yes (Other)
  Sender: FDA-Public Use
  Company Number: JP-PFIZER INC-2013356130

PATIENT
  Age: 77 Year
  Sex: Female

DRUGS (1)
  1. AROMASIN [Suspect]
     Route: 048

REACTIONS (4)
  - Spinal column injury [Unknown]
  - Nasopharyngitis [Unknown]
  - Pyrexia [Unknown]
  - Malaise [Unknown]
